FAERS Safety Report 21720059 (Version 1)
Quarter: 2022Q4

REPORT INFORMATION
  Report Type: Spontaneous
  Country: GB (occurrence: GB)
  Receive Date: 20221213
  Receipt Date: 20221213
  Transmission Date: 20230113
  Serious: Yes (Hospitalization, Other)
  Sender: FDA-Public Use
  Company Number: GB-ROCHE-2552993

PATIENT
  Age: 65 Year
  Sex: Female
  Weight: 80 kg

DRUGS (64)
  1. BENDAMUSTINE [Suspect]
     Active Substance: BENDAMUSTINE
     Indication: Follicular lymphoma
     Route: 065
     Dates: start: 20210706
  2. BENDAMUSTINE [Suspect]
     Active Substance: BENDAMUSTINE
     Dosage: 180 MG EVERY DAY (PHARMACEUTICAL DOSE FORM: 15)
     Route: 065
     Dates: start: 20210308
  3. ATEZOLIZUMAB [Suspect]
     Active Substance: ATEZOLIZUMAB
     Indication: Non-small cell lung cancer
     Dosage: SUBSEQUENTLY, DOSE ON  09/MAR/2020, 06/APR/2020 AND 27/APR/2020, 08/JUN/2020 AND 18/MAY/2020, 25/JUN
     Route: 041
     Dates: start: 20200210
  4. ATEZOLIZUMAB [Suspect]
     Active Substance: ATEZOLIZUMAB
     Indication: Transitional cell carcinoma
     Dosage: SUBSEQUENTLY, DOSE ON  09/MAR/2020, 06/APR/2020 AND 27/APR/2020, 08/JUN/2020 AND 18/MAY/2020, 25/JUN
     Route: 041
     Dates: start: 20200309
  5. ATEZOLIZUMAB [Suspect]
     Active Substance: ATEZOLIZUMAB
     Dosage: SUBSEQUENTLY, DOSE ON  09/MAR/2020, 06/APR/2020 AND 27/APR/2020, 08/JUN/2020 AND 18/MAY/2020, 25/JUN
     Route: 041
     Dates: start: 20200406
  6. ATEZOLIZUMAB [Suspect]
     Active Substance: ATEZOLIZUMAB
     Dosage: SUBSEQUENTLY, DOSE ON  09/MAR/2020, 06/APR/2020 AND 27/APR/2020, 08/JUN/2020 AND 18/MAY/2020, 25/JUN
     Route: 041
     Dates: start: 20200427
  7. ATEZOLIZUMAB [Suspect]
     Active Substance: ATEZOLIZUMAB
     Dosage: SUBSEQUENTLY, DOSE ON  09/MAR/2020, 06/APR/2020 AND 27/APR/2020, 08/JUN/2020 AND 18/MAY/2020, 25/JUN
     Route: 041
     Dates: start: 20200608
  8. ATEZOLIZUMAB [Suspect]
     Active Substance: ATEZOLIZUMAB
     Dosage: SUBSEQUENTLY, DOSE ON  09/MAR/2020, 06/APR/2020 AND 27/APR/2020, 08/JUN/2020 AND 18/MAY/2020, 25/JUN
     Route: 041
     Dates: start: 20200518
  9. ATEZOLIZUMAB [Suspect]
     Active Substance: ATEZOLIZUMAB
     Dosage: SUBSEQUENTLY, DOSE ON  09/MAR/2020, 06/APR/2020 AND 27/APR/2020, 08/JUN/2020 AND 18/MAY/2020, 25/JUN
     Route: 041
     Dates: start: 20200625
  10. ATEZOLIZUMAB [Suspect]
     Active Substance: ATEZOLIZUMAB
     Dosage: 1200 MILLIGRAM, Q2WK
     Route: 042
     Dates: start: 20200210
  11. BEVACIZUMAB [Suspect]
     Active Substance: BEVACIZUMAB
     Indication: Non-small cell lung cancer
     Route: 042
     Dates: start: 20200210
  12. BEVACIZUMAB [Suspect]
     Active Substance: BEVACIZUMAB
     Indication: Transitional cell carcinoma
     Dosage: 1200 MG, 1 WEEK; CUMULATIVE DOSE TO FIRST REACTION: 685.7143 MG
     Route: 042
     Dates: start: 20200210
  13. BEVACIZUMAB [Suspect]
     Active Substance: BEVACIZUMAB
     Dosage: 1200 MILLIGRAM, BIWEEKLY; CUMULATIVE DOSE TO FIRST REACTION: 44396.43 MG
     Route: 042
     Dates: start: 20200210
  14. BEVACIZUMAB [Suspect]
     Active Substance: BEVACIZUMAB
     Dosage: 1200 MG, 3 WEEK; CUMULATIVE DOSE TO FIRST REACTION: 228.57143 MG
     Route: 042
     Dates: start: 20200210
  15. BEVACIZUMAB [Suspect]
     Active Substance: BEVACIZUMAB
     Dosage: 1200 MG, 3 WEEK; CUMULATIVE DOSE TO FIRST REACTION: 228.57143 MG
     Route: 042
     Dates: start: 20200210
  16. CARBOPLATIN [Suspect]
     Active Substance: CARBOPLATIN
     Indication: Transitional cell carcinoma
     Route: 042
     Dates: start: 20200210
  17. CARBOPLATIN [Suspect]
     Active Substance: CARBOPLATIN
     Route: 042
  18. DIHYDROCODEINE BITARTRATE [Suspect]
     Active Substance: DIHYDROCODEINE BITARTRATE
     Indication: Visual impairment
     Route: 065
  19. EPCORITAMAB [Suspect]
     Active Substance: EPCORITAMAB
     Indication: Follicular lymphoma
     Dosage: 0.16 MILLIGRAM, DAILY, PRIMING DOSE, SINGLE
     Route: 065
     Dates: start: 20210308, end: 20210308
  20. EPCORITAMAB [Suspect]
     Active Substance: EPCORITAMAB
     Indication: Follicular lymphoma
     Dosage: 24 MILLIGRAM, EVERY 1 WEEK, FULL DOSE, CYCLE 1-3
     Route: 065
     Dates: start: 20210322, end: 20210527
  21. EPCORITAMAB [Suspect]
     Active Substance: EPCORITAMAB
     Dosage: 24 MILLIGRAM, Q2WEEKS, FULL DOSE, CYCLE 4-9
     Route: 065
     Dates: start: 20210607
  22. EPCORITAMAB [Suspect]
     Active Substance: EPCORITAMAB
     Dosage: 0.8 MILLIGRAM, DAILY, INTERMEDIATE DOSE, SINGLE
     Route: 065
     Dates: start: 20210315, end: 20210315
  23. PACLITAXEL [Suspect]
     Active Substance: PACLITAXEL
     Indication: Transitional cell carcinoma
     Route: 065
     Dates: start: 20200427
  24. PACLITAXEL [Suspect]
     Active Substance: PACLITAXEL
     Route: 065
  25. RITUXIMAB [Suspect]
     Active Substance: RITUXIMAB
     Indication: Follicular lymphoma
     Dosage: 750 MILLIGRAM, DATE OF LAST DOSE PRIOR TO EVENT: 9/SEP/2021/DATE OF LAST DOSE PRIOR TO EVENT: 21-SEP
     Route: 042
     Dates: start: 20210308
  26. RITUXIMAB [Suspect]
     Active Substance: RITUXIMAB
     Dosage: 750 MILLIGRAM
     Route: 042
     Dates: start: 20210705
  27. RITUXIMAB [Suspect]
     Active Substance: RITUXIMAB
     Dosage: 750 MG 1Q4W (PHARMACEUTICAL DOSE FORM: 15)
     Route: 042
     Dates: start: 20210308
  28. RITUXIMAB [Suspect]
     Active Substance: RITUXIMAB
     Dosage: 750 MILLIGRAM, 4XW (CUMULATIVE DOSE TO FIRST REACTION: 53982.145 MG)
     Route: 042
     Dates: start: 20210308
  29. RITUXIMAB [Suspect]
     Active Substance: RITUXIMAB
     Route: 042
     Dates: start: 20210308
  30. DAPSONE [Concomitant]
     Active Substance: DAPSONE
     Indication: Product used for unknown indication
     Route: 065
  31. NITROFURANTOIN [Concomitant]
     Active Substance: NITROFURANTOIN
     Indication: Hiatus hernia
     Route: 065
     Dates: start: 20200204
  32. ACYCLOVIR [Concomitant]
     Active Substance: ACYCLOVIR
     Indication: Product used for unknown indication
     Dosage: (0.33/DAY)
     Route: 065
     Dates: start: 20200402, end: 20200404
  33. BUTYLSCOPOLAMINE BROMIDE [Concomitant]
     Active Substance: BUTYLSCOPOLAMINE BROMIDE
     Indication: Product used for unknown indication
  34. CALCIUM [Concomitant]
     Active Substance: CALCIUM
     Indication: Product used for unknown indication
     Dosage: UNK
     Route: 065
     Dates: start: 20210504
  35. CEFUROXIME [Concomitant]
     Active Substance: CEFUROXIME
     Indication: Product used for unknown indication
     Dosage: UNK
     Route: 065
  36. CHLORHEXIDINE [Concomitant]
     Active Substance: CHLORHEXIDINE
     Indication: Hiatus hernia
  37. CLEMASTINE FUMARATE [Concomitant]
     Active Substance: CLEMASTINE FUMARATE
     Indication: Product used for unknown indication
     Dosage: UNK
     Route: 065
     Dates: start: 20210509
  38. CHOLECALCIFEROL [Concomitant]
     Active Substance: CHOLECALCIFEROL
     Indication: Product used for unknown indication
     Dosage: UNK
     Route: 065
     Dates: start: 20210504
  39. DEXAMETHASONE [Concomitant]
     Active Substance: DEXAMETHASONE
     Indication: Headache
     Route: 065
     Dates: start: 20200625
  40. FLUTICASONE FUROATE [Concomitant]
     Active Substance: FLUTICASONE FUROATE
     Indication: Product used for unknown indication
     Dosage: UNK
     Route: 065
     Dates: start: 20210708
  41. FLUTICASONE FUROATE [Concomitant]
     Active Substance: FLUTICASONE FUROATE
     Dosage: UNK
     Route: 065
     Dates: start: 20210708
  42. GELCLAIR [Concomitant]
     Indication: Product used for unknown indication
     Route: 065
     Dates: start: 20200407, end: 20200409
  43. HYDROCORTISONE [Concomitant]
     Active Substance: HYDROCORTISONE
     Indication: Product used for unknown indication
     Dosage: UNK
     Route: 065
     Dates: start: 20210715
  44. HYDROCORTISONE [Concomitant]
     Active Substance: HYDROCORTISONE
     Dosage: UNK
     Route: 065
     Dates: start: 20210715
  45. LANSOPRAZOLE [Concomitant]
     Active Substance: LANSOPRAZOLE
     Indication: Product used for unknown indication
  46. LOPERAMIDE [Concomitant]
     Active Substance: LOPERAMIDE
     Indication: Product used for unknown indication
     Dosage: UNK
     Route: 065
     Dates: start: 20210518
  47. METOCLOPRAMIDE [Concomitant]
     Active Substance: METOCLOPRAMIDE
     Indication: Product used for unknown indication
     Dosage: UNK
     Route: 065
     Dates: start: 20210509
  48. METOCLOPRAMIDE [Concomitant]
     Active Substance: METOCLOPRAMIDE
     Indication: Pain
     Dosage: UNK
     Route: 065
     Dates: start: 20210509
  49. METOCLOPRAMIDE [Concomitant]
     Active Substance: METOCLOPRAMIDE
     Dosage: [0.33/DAY]
     Route: 065
     Dates: start: 20200214, end: 20200220
  50. METOCLOPRAMIDE [Concomitant]
     Active Substance: METOCLOPRAMIDE
     Dosage: [0.33/DAY]
     Route: 065
     Dates: start: 20200214, end: 20200222
  51. MICONAZOLE NITRATE [Concomitant]
     Active Substance: MICONAZOLE NITRATE
     Indication: Product used for unknown indication
     Dosage: UNK
     Route: 065
     Dates: start: 20210715
  52. MICONAZOLE NITRATE [Concomitant]
     Active Substance: MICONAZOLE NITRATE
     Dosage: UNK
     Route: 065
     Dates: start: 20210715
  53. ONDANSETRON [Concomitant]
     Active Substance: ONDANSETRON
     Indication: Product used for unknown indication
     Route: 065
     Dates: start: 20220210, end: 20220210
  54. MORPHINE SULFATE [Concomitant]
     Active Substance: MORPHINE SULFATE
     Indication: Product used for unknown indication
  55. OXETACAINE [Concomitant]
     Active Substance: OXETHAZAINE
     Indication: Mucosal inflammation
     Route: 065
     Dates: start: 20200221
  56. ACETAMINOPHEN [Concomitant]
     Active Substance: ACETAMINOPHEN
     Indication: Pain
     Route: 065
     Dates: start: 20210308
  57. ACETAMINOPHEN [Concomitant]
     Active Substance: ACETAMINOPHEN
     Route: 065
  58. AMDINOCILLIN PIVOXIL [Concomitant]
     Active Substance: AMDINOCILLIN PIVOXIL
     Indication: Product used for unknown indication
     Route: 065
  59. POTASSIUM CHLORIDE [Concomitant]
     Active Substance: POTASSIUM CHLORIDE
     Indication: Product used for unknown indication
     Dosage: UNK
     Route: 065
     Dates: start: 20210308
  60. POTASSIUM CHLORIDE [Concomitant]
     Active Substance: POTASSIUM CHLORIDE
     Dosage: UNK
     Route: 065
     Dates: start: 20210308
  61. PRAMIPEXOLE [Concomitant]
     Active Substance: PRAMIPEXOLE
     Indication: Product used for unknown indication
     Dosage: UNK
     Route: 065
     Dates: start: 20120823
  62. ALBUTEROL [Concomitant]
     Active Substance: ALBUTEROL
     Indication: Product used for unknown indication
     Dosage: UNK
     Route: 065
     Dates: start: 20210708
  63. VILANTEROL TRIFENATATE [Concomitant]
     Active Substance: VILANTEROL TRIFENATATE
     Indication: Product used for unknown indication
     Dosage: UNK
     Route: 065
     Dates: start: 20210708
  64. VILANTEROL TRIFENATATE [Concomitant]
     Active Substance: VILANTEROL TRIFENATATE
     Dosage: UNK
     Route: 065
     Dates: start: 20210708

REACTIONS (8)
  - Hydronephrosis [Unknown]
  - Sepsis [Unknown]
  - Abdominal pain [Recovered/Resolved]
  - Blood creatinine increased [Unknown]
  - Constipation [Recovered/Resolved]
  - Cytomegalovirus infection [Recovered/Resolved]
  - Off label use [Unknown]
  - Product use issue [Unknown]

NARRATIVE: CASE EVENT DATE: 20200214
